FAERS Safety Report 9917815 (Version 1)
Quarter: 2014Q1

REPORT INFORMATION
  Report Type: Report from Study
  Country: US (occurrence: US)
  Receive Date: 20140221
  Receipt Date: 20140221
  Transmission Date: 20141002
  Serious: Yes (Other)
  Sender: FDA-Public Use
  Company Number: US-ABBVIE-14P-163-1201701-00

PATIENT
  Sex: Female
  Weight: 106.69 kg

DRUGS (11)
  1. HUMIRA [Suspect]
     Indication: CROHN^S DISEASE
     Dates: start: 2010
  2. ENTOCORT [Concomitant]
     Indication: CROHN^S DISEASE
  3. LOSARTAN [Concomitant]
     Indication: HYPERTENSION
  4. TRILIPIX [Concomitant]
     Indication: BLOOD CHOLESTEROL INCREASED
  5. OMEPRAZOLE [Concomitant]
     Indication: CROHN^S DISEASE
  6. ZOLOFT [Concomitant]
     Indication: ANXIETY
  7. WELLBUTRIN [Concomitant]
     Indication: ANXIETY
  8. WELLBUTRIN [Concomitant]
     Indication: DEPRESSION
  9. CARVEDILOL [Concomitant]
     Indication: HYPERTENSION
  10. STOOL SOFTENER [Concomitant]
     Indication: DIARRHOEA
  11. ENBREL [Concomitant]
     Indication: PRODUCT USED FOR UNKNOWN INDICATION

REACTIONS (8)
  - Precancerous skin lesion [Unknown]
  - Rash [Not Recovered/Not Resolved]
  - Rash pruritic [Not Recovered/Not Resolved]
  - Rash [Not Recovered/Not Resolved]
  - Nasopharyngitis [Recovered/Resolved]
  - Crohn^s disease [Unknown]
  - Paranasal sinus hypersecretion [Not Recovered/Not Resolved]
  - Dermatitis contact [Unknown]
